FAERS Safety Report 17758349 (Version 3)
Quarter: 2020Q2

REPORT INFORMATION
  Report Type: Spontaneous
  Country: NZ (occurrence: NZ)
  Receive Date: 20200507
  Receipt Date: 20200526
  Transmission Date: 20200714
  Serious: Yes (Hospitalization, Other)
  Sender: FDA-Public Use
  Company Number: NZ-PFIZER INC-2020181288

PATIENT
  Age: 24 Year
  Sex: Female

DRUGS (1)
  1. METHOTREXATE SODIUM. [Suspect]
     Active Substance: METHOTREXATE SODIUM
     Dosage: UNK
     Route: 048

REACTIONS (5)
  - Cytopenia [Recovered/Resolved]
  - Anaemia megaloblastic [Unknown]
  - Pancytopenia [Recovered/Resolved]
  - Intentional self-injury [Unknown]
  - Intentional product misuse [Recovered/Resolved]
